FAERS Safety Report 8442748-8 (Version None)
Quarter: 2012Q2

REPORT INFORMATION
  Report Type: 
  Country: None (occurrence: None)
  Receive Date: 20120615
  Receipt Date: 20120611
  Transmission Date: 20120825
  Serious: Yes (Life-Threatening, Other)
  Sender: FDA-Public Use
  Company Number: US-ASTRAZENECA-2012SE29526

PATIENT
  Age: 49 Year
  Sex: Male

DRUGS (6)
  1. ACTOS [Concomitant]
     Route: 048
  2. BYSTOLIC [Concomitant]
     Route: 048
  3. CAPRELSA [Suspect]
     Indication: THYROID CANCER
     Route: 048
  4. VICODIN [Concomitant]
     Dosage: 5-500 MG TOTAL DAILY DOSE
     Route: 048
  5. BENAZEPRIL HYDROCHLORIDE [Concomitant]
     Route: 048
  6. CALCIUM PLUS D [Concomitant]
     Dosage: 600.200 MG TOTAL DAILY DOSE
     Route: 048

REACTIONS (7)
  - MUSCULOSKELETAL DISCOMFORT [None]
  - DYSPNOEA [None]
  - NAUSEA [None]
  - HYPERHIDROSIS [None]
  - ELECTROCARDIOGRAM QT PROLONGED [None]
  - DIZZINESS [None]
  - BLOOD PRESSURE INCREASED [None]
